FAERS Safety Report 9854663 (Version 1)
Quarter: 2014Q1

REPORT INFORMATION
  Report Type: Spontaneous
  Country: US (occurrence: US)
  Receive Date: 20140130
  Receipt Date: 20140130
  Transmission Date: 20141002
  Serious: No
  Sender: FDA-Public Use
  Company Number: US-BIOGENIDEC-2014BI008175

PATIENT
  Age: 63 Year
  Sex: Female

DRUGS (7)
  1. TECFIDERA [Suspect]
     Indication: MULTIPLE SCLEROSIS
     Route: 048
     Dates: start: 201310
  2. SIMVASTATIN [Concomitant]
  3. LISINOPRIL-HCTZ [Concomitant]
  4. CELEXA [Concomitant]
  5. COQ10 SG [Concomitant]
  6. VESICARE [Concomitant]
  7. CVS MEGA MULTIVITAMIN [Concomitant]

REACTIONS (3)
  - Viral infection [Not Recovered/Not Resolved]
  - Diarrhoea [Not Recovered/Not Resolved]
  - Nausea [Not Recovered/Not Resolved]
